FAERS Safety Report 16523730 (Version 4)
Quarter: 2019Q4

REPORT INFORMATION
  Report Type: Spontaneous
  Country: US (occurrence: US)
  Receive Date: 20190703
  Receipt Date: 20191209
  Transmission Date: 20200122
  Serious: No
  Sender: FDA-Public Use
  Company Number: US-PFIZER INC-2019283463

PATIENT
  Age: 63 Year
  Sex: Female

DRUGS (1)
  1. AROMASIN [Suspect]
     Active Substance: EXEMESTANE
     Indication: BREAST CANCER FEMALE
     Dosage: 25 MG, UNK
     Dates: start: 201805

REACTIONS (4)
  - Dizziness [Unknown]
  - Obsessive-compulsive disorder [Unknown]
  - Neoplasm progression [Unknown]
  - Anxiety disorder [Unknown]
